FAERS Safety Report 8396124-7 (Version None)
Quarter: 2012Q2

REPORT INFORMATION
  Report Type: 
  Country: None (occurrence: None)
  Receive Date: 20120530
  Receipt Date: 20110401
  Transmission Date: 20120825
  Serious: Yes (Hospitalization)
  Sender: FDA-Public Use
  Company Number: US-GLAXOSMITHKLINE-A0921872A

PATIENT
  Age: 37 Year
  Sex: Male
  Weight: 102 kg

DRUGS (2)
  1. FLOLAN [Suspect]
     Indication: PULMONARY ARTERIAL HYPERTENSION
     Dosage: 23.2NGKM UNKNOWN
     Route: 065
     Dates: start: 20100801
  2. ADCIRCA [Concomitant]
     Indication: PULMONARY ARTERIAL HYPERTENSION
     Dosage: 40MGD PER DAY
     Route: 048
     Dates: start: 20110106

REACTIONS (6)
  - DEVICE RELATED INFECTION [None]
  - DIARRHOEA [None]
  - PAIN IN JAW [None]
  - PYREXIA [None]
  - FLUSHING [None]
  - CATHETER SITE PAIN [None]
